FAERS Safety Report 5822224-9 (Version None)
Quarter: 2008Q3

REPORT INFORMATION
  Report Type: 
  Country: None (occurrence: None)
  Receive Date: 20080725
  Receipt Date: 20080531
  Transmission Date: 20090109
  Serious: No
  Sender: FDA-Public Use
  Company Number: US-AMGEN-KDL283661

PATIENT
  Sex: Female

DRUGS (1)
  1. PROCRIT [Suspect]
     Indication: PREOPERATIVE CARE
     Dates: start: 20080521

REACTIONS (4)
  - ANXIETY [None]
  - CYSTITIS [None]
  - DYSPNOEA [None]
  - HEART RATE INCREASED [None]
